FAERS Safety Report 4542308-5 (Version None)
Quarter: 2004Q4

REPORT INFORMATION
  Report Type: 
  Country: None (occurrence: None)
  Receive Date: 20041227
  Receipt Date: 20041217
  Transmission Date: 20050328
  Serious: Yes (Other)
  Sender: FDA-Public Use
  Company Number: 211231

PATIENT

DRUGS (1)
  1. XOLAIR [Suspect]

REACTIONS (1)
  - CONVULSION [None]
